FAERS Safety Report 6408755-1 (Version None)
Quarter: 2009Q4

REPORT INFORMATION
  Report Type: 
  Country: None (occurrence: None)
  Receive Date: 20091021
  Receipt Date: 20091019
  Transmission Date: 20100525
  Serious: Yes (Other)
  Sender: FDA-Public Use
  Company Number: A0797530A

PATIENT
  Age: 18 Year
  Sex: Female

DRUGS (2)
  1. RELENZA [Suspect]
     Indication: VIRAL INFECTION
     Dosage: 2PUFF TWICE PER DAY
     Route: 055
     Dates: start: 20090714, end: 20090716
  2. NO CONCURRENT MEDICATION [Concomitant]

REACTIONS (5)
  - ANGINA PECTORIS [None]
  - INSOMNIA [None]
  - PAIN [None]
  - PAINFUL RESPIRATION [None]
  - PALPITATIONS [None]
